FAERS Safety Report 25270854 (Version 2)
Quarter: 2025Q3

REPORT INFORMATION
  Report Type: Report from Study
  Country: US (occurrence: US)
  Receive Date: 20250506
  Receipt Date: 20250710
  Transmission Date: 20251020
  Serious: Yes (Other)
  Sender: JAZZ
  Company Number: US-JAZZ PHARMACEUTICALS-2025-US-008184

PATIENT
  Age: 22 Year
  Sex: Male
  Weight: 50.3 kg

DRUGS (4)
  1. EPIDIOLEX [Suspect]
     Active Substance: CANNABIDIOL
     Indication: Lennox-Gastaut syndrome
     Dosage: 1.45 MILLILITER, BID
     Route: 048
     Dates: start: 20250322
  2. EPIDIOLEX [Suspect]
     Active Substance: CANNABIDIOL
     Dosage: 2.5 MILLILITER, BID
     Route: 048
  3. EPIDIOLEX [Suspect]
     Active Substance: CANNABIDIOL
     Dates: start: 20250702
  4. EPIDIOLEX [Suspect]
     Active Substance: CANNABIDIOL
     Dosage: 4.5 MILLILITER, BID

REACTIONS (6)
  - Tonic convulsion [Not Recovered/Not Resolved]
  - Generalised tonic-clonic seizure [Not Recovered/Not Resolved]
  - Seizure cluster [Unknown]
  - Seizure [Recovered/Resolved with Sequelae]
  - Drug tolerance [Unknown]
  - Prescribed overdose [Unknown]

NARRATIVE: CASE EVENT DATE: 20250326
